FAERS Safety Report 7310542-7 (Version None)
Quarter: 2011Q1

REPORT INFORMATION
  Report Type: 
  Country: None (occurrence: None)
  Receive Date: 20110224
  Receipt Date: 20101216
  Transmission Date: 20110831
  Serious: No
  Sender: FDA-Public Use
  Company Number: US-BRISTOL-MYERS SQUIBB COMPANY-15445885

PATIENT
  Age: 50 Year
  Sex: Male
  Weight: 77 kg

DRUGS (2)
  1. GLUCOPHAGE [Suspect]
     Indication: HYPERGLYCAEMIA
     Dosage: ABOUT 21/2 TO 3 YEARS
     Dates: end: 20101102
  2. MULTIVITAMIN [Concomitant]

REACTIONS (1)
  - HYPOGLYCAEMIA [None]
